FAERS Safety Report 15110182 (Version 2)
Quarter: 2018Q3

REPORT INFORMATION
  Report Type: Report from Study
  Country: GB (occurrence: GB)
  Receive Date: 20180705
  Receipt Date: 20180809
  Transmission Date: 20181010
  Serious: Yes (Other)
  Sender: FDA-Public Use
  Company Number: PHHY2018GB033271

PATIENT
  Sex: Male

DRUGS (2)
  1. ENTRESTO [Suspect]
     Active Substance: SACUBITRIL\VALSARTAN
     Indication: PRODUCT USED FOR UNKNOWN INDICATION
     Dosage: 1 DF (SACUBITRIL 49 MG/ VALSARTAN 51 MG), BID
     Route: 065
     Dates: start: 20180529
  2. SPIRONOLACTONE. [Suspect]
     Active Substance: SPIRONOLACTONE
     Indication: PRODUCT USED FOR UNKNOWN INDICATION
     Dosage: 25 MG, QD
     Route: 065
     Dates: start: 20180530

REACTIONS (18)
  - Headache [Recovered/Resolved]
  - Chest pain [Recovered/Resolved]
  - Blood sodium decreased [Recovered/Resolved]
  - Blood urea increased [Recovering/Resolving]
  - Blood potassium increased [Unknown]
  - Diarrhoea [Recovered/Resolved]
  - Nausea [Recovered/Resolved]
  - Asthenia [Recovering/Resolving]
  - Dizziness [Recovered/Resolved]
  - Hypoaesthesia [Recovered/Resolved]
  - Blood glucose increased [Recovering/Resolving]
  - Blood creatinine increased [Recovering/Resolving]
  - Glomerular filtration rate decreased [Recovering/Resolving]
  - Tremor [Recovered/Resolved]
  - Gout [Recovering/Resolving]
  - Muscle spasms [Recovered/Resolved]
  - Fatigue [Recovering/Resolving]
  - Urticaria [Recovered/Resolved]
